FAERS Safety Report 6821985-X (Version None)
Quarter: 2010Q3

REPORT INFORMATION
  Report Type: 
  Country: None (occurrence: None)
  Receive Date: 20100707
  Receipt Date: 20100707
  Transmission Date: 20110219
  Serious: Yes (Hospitalization)
  Sender: FDA-Public Use
  Company Number: None

PATIENT
  Sex: Female
  Weight: 79.5 kg

DRUGS (14)
  1. BENDAMUSTINE 10 MG VIALS CEPHALON [Suspect]
     Indication: SMALL CELL LUNG CANCER STAGE UNSPECIFIED
     Dosage: 196MG DAYS 1 AND 2 IV
     Route: 042
     Dates: start: 20100615
  2. BENDAMUSTINE 10 MG VIALS CEPHALON [Suspect]
     Indication: SMALL CELL LUNG CANCER STAGE UNSPECIFIED
     Dosage: 196MG DAYS 1 AND 2 IV
     Route: 042
     Dates: start: 20100616
  3. BENDAMUSTINE 10 MG VIALS CEPHALON [Suspect]
  4. BENDAMUSTINE 10 MG VIALS CEPHALON [Suspect]
  5. BENDAMUSTINE 10 MG VIALS CEPHALON [Suspect]
  6. IRINOTECAN HCL [Suspect]
     Dosage: 294MG DAYS 1 IV
     Route: 042
     Dates: start: 20100615
  7. COMPAZINE [Concomitant]
  8. ATIVAN [Concomitant]
  9. PERCOCET [Concomitant]
  10. DARVOCET-N 100 [Concomitant]
  11. ALLEGRA [Concomitant]
  12. LISINOPRIL [Concomitant]
  13. TUSSINEX [Concomitant]
  14. ALBUTEROL [Concomitant]

REACTIONS (3)
  - CHEST PAIN [None]
  - INFLAMMATION [None]
  - PERICARDIAL EFFUSION [None]
